FAERS Safety Report 8450446-X (Version None)
Quarter: 2012Q2

REPORT INFORMATION
  Report Type: 
  Country: None (occurrence: None)
  Receive Date: 20120620
  Receipt Date: 20120612
  Transmission Date: 20120825
  Serious: Yes (Hospitalization, Other)
  Sender: FDA-Public Use
  Company Number: JP-ASTELLAS-2012US005470

PATIENT
  Sex: Male
  Weight: 75 kg

DRUGS (11)
  1. CLOTIAZEPAM [Concomitant]
     Indication: PRODUCT USED FOR UNKNOWN INDICATION
     Dosage: 15 MG, UID/QD
     Route: 048
  2. LOXOPROFEN                         /00890702/ [Concomitant]
     Indication: ADENOCARCINOMA PANCREAS
     Dosage: 60-120 MG / DAY
     Route: 065
     Dates: start: 20120417
  3. LANSOPRAZOLE [Concomitant]
     Indication: PROPHYLAXIS
     Dosage: 15 MG, UID/QD
     Route: 048
  4. GRANISETRON HYDROCHLORIDE [Concomitant]
     Indication: PROPHYLAXIS
     Dosage: 1 MG, UID/QD
     Route: 042
  5. ERLOTINIB HYDROCHLORIDE [Suspect]
     Indication: ADENOCARCINOMA PANCREAS
     Dosage: 100 MG, UID/QD
     Route: 048
     Dates: start: 20120411, end: 20120502
  6. GEMCITABINE [Suspect]
     Dosage: 1000 MG/M2, UID/QD
     Route: 065
     Dates: start: 20120418, end: 20120418
  7. GEMCITABINE [Suspect]
     Indication: ADENOCARCINOMA PANCREAS
     Dosage: 1000 MG/M2, UID/QD
     Route: 065
     Dates: start: 20120411, end: 20120411
  8. GEMCITABINE [Suspect]
     Dosage: 1000 MG/M2, UID/QD
     Route: 065
     Dates: start: 20120425, end: 20120425
  9. LOXOPROFEN                         /00890702/ [Concomitant]
     Dosage: 180 MG, UID/QD
     Route: 048
     Dates: start: 20120418
  10. LENDORMIN [Concomitant]
     Indication: PRODUCT USED FOR UNKNOWN INDICATION
     Dosage: 0.25 MG, UID/QD
     Route: 048
  11. DEXAMETHASONE SODIUM PHOSPHATE [Concomitant]
     Indication: PROPHYLAXIS
     Dosage: 6.6 MG, UID/QD
     Route: 042

REACTIONS (7)
  - PYREXIA [None]
  - RASH [None]
  - DEPRESSION [None]
  - CONSTIPATION [None]
  - ANAEMIA [None]
  - WHITE BLOOD CELL COUNT DECREASED [None]
  - HYPERGLYCAEMIA [None]
